FAERS Safety Report 8978941 (Version 4)
Quarter: 2013Q2

REPORT INFORMATION
  Report Type: Spontaneous
  Country: US (occurrence: US)
  Receive Date: 20121221
  Receipt Date: 20130528
  Transmission Date: 20140414
  Serious: Yes (Other)
  Sender: FDA-Public Use
  Company Number: US-BAYER-2012-133977

PATIENT
  Age: 30 Year
  Sex: Female
  Weight: 63.27 kg

DRUGS (1)
  1. MIRENA [Suspect]
     Indication: CONTRACEPTION
     Dosage: 20 MCG/24HR, CONT
     Route: 015
     Dates: start: 201212

REACTIONS (4)
  - Genital haemorrhage [Not Recovered/Not Resolved]
  - Dizziness [None]
  - Vision blurred [None]
  - Coital bleeding [None]
